FAERS Safety Report 9061502 (Version 1)
Quarter: 2013Q1

REPORT INFORMATION
  Report Type: Spontaneous
  Country: US (occurrence: US)
  Receive Date: 20130204
  Receipt Date: 20130204
  Transmission Date: 20140127
  Serious: No
  Sender: FDA-Public Use
  Company Number: US-B.I. PHARMACEUTICALS,INC./RIDGEFIELD-2013-BI-02629BP

PATIENT
  Age: 74 None
  Sex: Female
  Weight: 111 kg

DRUGS (2)
  1. SPIRIVA [Suspect]
     Indication: CHRONIC OBSTRUCTIVE PULMONARY DISEASE
     Dosage: 18 MG
     Route: 055
     Dates: start: 2008, end: 2009
  2. SPIRIVA [Suspect]
     Dosage: 18 MG
     Route: 055
     Dates: start: 201206

REACTIONS (5)
  - Pneumonia [Not Recovered/Not Resolved]
  - Diabetes mellitus [Not Recovered/Not Resolved]
  - Urinary tract infection [Recovered/Resolved]
  - Product quality issue [Unknown]
  - Product quality issue [Unknown]
